FAERS Safety Report 8089111-X (Version None)
Quarter: 2012Q1

REPORT INFORMATION
  Report Type: 
  Country: None (occurrence: None)
  Receive Date: 20120128
  Receipt Date: 20110627
  Transmission Date: 20120608
  Serious: No
  Sender: FDA-Public Use
  Company Number: US-ABBOTT-11P-163-0834586-00

PATIENT
  Age: 63 Year
  Sex: Male

DRUGS (17)
  1. AMANTADINE HCL [Concomitant]
     Indication: DEMENTIA
     Dosage: 100 MG BID
  2. LIPITOR [Concomitant]
     Indication: BLOOD CHOLESTEROL INCREASED
     Dosage: 40 MG DAILY
  3. FLONASE [Concomitant]
     Indication: HYPERSENSITIVITY
     Dosage: 2 PUFF PER NOSTRIL BID
     Route: 045
  4. ARICEPT [Concomitant]
     Indication: DEMENTIA
     Dosage: 10 MG DAILY
  5. MORPHINE SULFATE [Concomitant]
     Indication: ARTHRALGIA
     Dosage: 30 MG - ONE EVERY 12 HOURS
  6. CLARITIN [Concomitant]
     Indication: SEASONAL ALLERGY
     Dosage: 10 MG DAILY
  7. HYDROCODONE BITARTRATE AND ACETAMINOPHEN [Concomitant]
     Indication: ARTHRALGIA
     Dosage: 7.5MG/325MG BID
  8. METOPROLOL TARTRATE [Concomitant]
     Indication: HYPERTENSION
     Dosage: 100 MG BID
  9. FENOFIBRATE [Concomitant]
     Indication: BLOOD CHOLESTEROL INCREASED
     Dosage: 134 MG DAILY
  10. NEURONTIN [Concomitant]
     Indication: ANXIETY
  11. LEFLUNOMIDE [Concomitant]
     Indication: RHEUMATOID ARTHRITIS
     Dosage: 20 MG BID
  12. HUMIRA [Suspect]
     Indication: RHEUMATOID ARTHRITIS
     Dates: start: 20100601, end: 20110627
  13. VESICARE [Concomitant]
     Indication: PROSTATIC DISORDER
     Dosage: 10 MG DAILY
  14. COLACE [Concomitant]
     Indication: CONSTIPATION
     Dosage: ONE DAILY
  15. NIASPAN [Concomitant]
     Indication: ARTHRITIS
     Dosage: 1000 MG; UNREPORTED FREQUENCY
  16. NEURONTIN [Concomitant]
     Indication: RESTLESS LEGS SYNDROME
     Dosage: 30 MG DAILY
  17. MULTI-VITAMIN [Concomitant]
     Indication: VITAMIN SUPPLEMENTATION
     Dosage: ONE DAILY

REACTIONS (2)
  - SYNOVIAL CYST [None]
  - RASH [None]
